FAERS Safety Report 26175384 (Version 1)
Quarter: 2025Q4

REPORT INFORMATION
  Report Type: Spontaneous
  Country: US (occurrence: US)
  Receive Date: 20251218
  Receipt Date: 20251218
  Transmission Date: 20260117
  Serious: Yes (Death, Hospitalization, Other)
  Sender: AMGEN
  Company Number: US-AMGEN-USASP2025244767

PATIENT

DRUGS (9)
  1. PREDNISONE [Suspect]
     Active Substance: PREDNISONE
     Indication: Immunosuppressant drug therapy
     Dosage: 0.5 MILLIGRAM/KILOGRAM, QD FROM POD 1
     Route: 048
  2. PREDNISONE [Suspect]
     Active Substance: PREDNISONE
     Dosage: 40 MILLIGRAM, QD
     Route: 048
  3. PREDNISONE [Suspect]
     Active Substance: PREDNISONE
     Dosage: 5 MILLIGRAM, Q2WK (TAPER DOSE)
     Route: 048
  4. PREDNISONE [Suspect]
     Active Substance: PREDNISONE
     Dosage: 5 MILLIGRAM, QD AS A MAINTENANCE DOSE.
     Route: 048
  5. METHYLPREDNISOLONE [Concomitant]
     Active Substance: METHYLPREDNISOLONE
     Indication: Immunosuppressant drug therapy
     Dosage: 1000 MILLIGRAM (INDUCTION)
     Route: 040
  6. BASILIXIMAB [Concomitant]
     Active Substance: BASILIXIMAB
     Indication: Immunosuppressant drug therapy
     Dosage: 20 MILLIGRAM AT INTRAOPERATIVELY AND (POSTOPERATIVE) INDUCTION
     Route: 065
  7. MYCOPHENOLATE MOFETIL [Concomitant]
     Active Substance: MYCOPHENOLATE MOFETIL
     Indication: Immunosuppressant drug therapy
     Dosage: 1000 MILLIGRAM, BID FROM POD 1
     Route: 065
  8. TACROLIMUS [Concomitant]
     Active Substance: TACROLIMUS
     Indication: Immunosuppressant drug therapy
     Dosage: GOAL TARGET LEVELS 8-12 WITWN
     Route: 065
  9. TACROLIMUS [Concomitant]
     Active Substance: TACROLIMUS
     Dosage: THEN TARGET 8-10 THEREAFTER
     Route: 065

REACTIONS (38)
  - Anoxia [Fatal]
  - Head injury [Fatal]
  - Cerebrovascular accident [Fatal]
  - Death [Fatal]
  - Haemoglobin decreased [Unknown]
  - Renal impairment [Unknown]
  - Transplant dysfunction [Unknown]
  - Acute kidney injury [Unknown]
  - Hospitalisation [Unknown]
  - Respiratory tract infection [Unknown]
  - Haematological infection [Unknown]
  - Pseudomonas infection [Unknown]
  - Enterococcal infection [Unknown]
  - Enterococcal bacteraemia [Unknown]
  - Pneumonia klebsiella [Unknown]
  - Klebsiella bacteraemia [Unknown]
  - Bronchopulmonary aspergillosis [Unknown]
  - Pneumonia staphylococcal [Unknown]
  - Staphylococcal bacteraemia [Unknown]
  - Enterobacter pneumonia [Unknown]
  - Enterobacter bacteraemia [Unknown]
  - Stenotrophomonas infection [Unknown]
  - Stenotrophomonas bacteraemia [Unknown]
  - Stomatococcal infection [Unknown]
  - Neisseria infection [Unknown]
  - Escherichia bacteraemia [Unknown]
  - Escherichia infection [Unknown]
  - Pneumonia serratia [Unknown]
  - Serratia bacteraemia [Unknown]
  - Acinetobacter bacteraemia [Unknown]
  - Pneumonia acinetobacter [Unknown]
  - Actinomycotic pulmonary infection [Unknown]
  - Actinomyces bacteraemia [Unknown]
  - Citrobacter infection [Unknown]
  - Bacterial infection [Unknown]
  - Pulmonary tuberculosis [Unknown]
  - Pneumonia cryptococcal [Unknown]
  - Candida infection [Unknown]
